FAERS Safety Report 6508658-8 (Version None)
Quarter: 2009Q4

REPORT INFORMATION
  Report Type: 
  Country: None (occurrence: None)
  Receive Date: 20091221
  Receipt Date: 20090806
  Transmission Date: 20100525
  Serious: Yes (Hospitalization)
  Sender: FDA-Public Use
  Company Number: US-ASTRAZENECA-2009SE07210

PATIENT
  Age: 74 Year
  Sex: Female

DRUGS (6)
  1. CRESTOR [Suspect]
     Route: 048
     Dates: start: 20090101, end: 20090101
  2. NORVASC [Concomitant]
  3. COLONADEN [Concomitant]
  4. LABETALOL HCL [Concomitant]
  5. PLAVIX [Concomitant]
  6. NEXIUM [Concomitant]

REACTIONS (1)
  - PANCREATITIS [None]
